FAERS Safety Report 24693785 (Version 5)
Quarter: 2025Q1

REPORT INFORMATION
  Report Type: Report from Study
  Country: US (occurrence: US)
  Receive Date: 20241204
  Receipt Date: 20250106
  Transmission Date: 20250408
  Serious: Yes (Other)
  Sender: ACADIA PHARMACEUTICALS
  Company Number: US-ACADIA PHARMACEUTICALS INC.-ACA-2024-PIM-007733

PATIENT
  Age: 66 Year
  Sex: Female

DRUGS (10)
  1. NUPLAZID [Suspect]
     Active Substance: PIMAVANSERIN TARTRATE
     Indication: Parkinson^s disease psychosis
     Dosage: 34 MILLIGRAM, QD
     Route: 048
     Dates: start: 20241120, end: 20241203
  2. NUPLAZID [Suspect]
     Active Substance: PIMAVANSERIN TARTRATE
     Dosage: 34 MILLIGRAM, QD
     Route: 048
     Dates: start: 20241203, end: 20241209
  3. ZYPREXA [Suspect]
     Active Substance: OLANZAPINE
  4. ALPRAZOLAM [Concomitant]
     Active Substance: ALPRAZOLAM
  5. SINEMET [Concomitant]
     Active Substance: CARBIDOPA\LEVODOPA
  6. IBUPROFEN [Concomitant]
     Active Substance: IBUPROFEN
  7. ISOTONIX COENZYME Q10 [Concomitant]
  8. AZILECT [Concomitant]
     Active Substance: RASAGILINE MESYLATE
  9. TEMAZEPAM [Concomitant]
     Active Substance: TEMAZEPAM
  10. OMEPRAZOLE [Concomitant]
     Active Substance: OMEPRAZOLE

REACTIONS (7)
  - Hallucination [Not Recovered/Not Resolved]
  - Malaise [Recovered/Resolved]
  - Motor dysfunction [Not Recovered/Not Resolved]
  - Delusion [Not Recovered/Not Resolved]
  - Parkinsonism [Unknown]
  - Intentional dose omission [Unknown]
  - Drug ineffective [Not Recovered/Not Resolved]

NARRATIVE: CASE EVENT DATE: 20241209
